FAERS Safety Report 6108956-6 (Version None)
Quarter: 2009Q1

REPORT INFORMATION
  Report Type: 
  Country: None (occurrence: None)
  Receive Date: 20090310
  Receipt Date: 20090224
  Transmission Date: 20090719
  Serious: Yes (Hospitalization)
  Sender: FDA-Public Use
  Company Number: FR-ELI_LILLY_AND_COMPANY-FR200901004500

PATIENT
  Age: 76 Year
  Sex: Female
  Weight: 36.7 kg

DRUGS (2)
  1. FORTEO [Suspect]
     Indication: OSTEOPOROSIS
     Dosage: 20 UG, DAILY (1/D)
     Route: 058
     Dates: start: 20081016, end: 20090121
  2. CACIT D3 [Concomitant]
     Indication: OSTEOPOROSIS
     Dosage: 1000 MG, DAILY (1/D)
     Route: 048
     Dates: start: 20070601, end: 20090126

REACTIONS (10)
  - COGNITIVE DISORDER [None]
  - DEHYDRATION [None]
  - DISORIENTATION [None]
  - FALL [None]
  - HYPERCALCAEMIA [None]
  - HYPOKALAEMIA [None]
  - HYPOPHOSPHATAEMIA [None]
  - HYPOPROTEINAEMIA [None]
  - RHABDOMYOLYSIS [None]
  - SYNCOPE [None]
